FAERS Safety Report 24838738 (Version 1)
Quarter: 2025Q1

REPORT INFORMATION
  Report Type: Report from Study
  Country: US (occurrence: US)
  Receive Date: 20250113
  Receipt Date: 20250113
  Transmission Date: 20250409
  Serious: Yes (Hospitalization, Other)
  Sender: ABBVIE
  Company Number: US-ABBVIE-6053650

PATIENT
  Age: 88 Year
  Sex: Male
  Weight: 51.2 kg

DRUGS (2)
  1. HUMIRA [Suspect]
     Active Substance: ADALIMUMAB
     Indication: Colitis ulcerative
     Dosage: LAST ADMIN DATE WAS 2023
     Route: 058
     Dates: start: 202301
  2. HUMIRA [Suspect]
     Active Substance: ADALIMUMAB
     Route: 058
     Dates: start: 20231102

REACTIONS (4)
  - Large intestinal haemorrhage [Recovered/Resolved]
  - Bladder cancer [Recovered/Resolved]
  - Haematuria [Recovered/Resolved]
  - Colonoscopy abnormal [Recovered/Resolved]

NARRATIVE: CASE EVENT DATE: 20240901
